FAERS Safety Report 4309649-8 (Version None)
Quarter: 2004Q1

REPORT INFORMATION
  Report Type: 
  Country: None (occurrence: None)
  Receive Date: 20040301
  Receipt Date: 20040113
  Transmission Date: 20041129
  Serious: Yes (Hospitalization)
  Sender: FDA-Public Use
  Company Number: 2001064209AT

PATIENT
  Age: 54 Year
  Sex: Male

DRUGS (7)
  1. CAMPTOSAR [Suspect]
     Indication: COLON CANCER
     Dosage: SEE IMAGE
     Route: 042
     Dates: start: 20010214, end: 20010214
  2. CAMPTOSAR [Suspect]
     Indication: COLON CANCER
     Dosage: SEE IMAGE
     Route: 042
     Dates: start: 20010228, end: 20010228
  3. FLUOROURACIL [Suspect]
     Indication: COLON CANCER
     Dosage: SEE IMAGE
     Route: 042
     Dates: start: 20010214, end: 20010217
  4. FLUOROURACIL [Suspect]
     Indication: COLON CANCER
     Dosage: SEE IMAGE
     Route: 042
     Dates: start: 20010228, end: 20010302
  5. FOLINIC ACID (FOLINIC ACID) [Suspect]
     Indication: COLON CANCER
     Dosage: SEE IMAGE
     Route: 042
     Dates: start: 20010214, end: 20010217
  6. FOLINIC ACID (FOLINIC ACID) [Suspect]
     Indication: COLON CANCER
     Dosage: SEE IMAGE
     Route: 042
     Dates: start: 20010228, end: 20010302
  7. ULSAL [Concomitant]

REACTIONS (3)
  - PAIN [None]
  - PHLEBOTHROMBOSIS [None]
  - SWELLING [None]
